FAERS Safety Report 6686309-X (Version None)
Quarter: 2010Q2

REPORT INFORMATION
  Report Type: 
  Country: None (occurrence: None)
  Receive Date: 20100419
  Receipt Date: 20100413
  Transmission Date: 20101027
  Serious: Yes (Other)
  Sender: FDA-Public Use
  Company Number: IE-PFIZER INC-2010046276

PATIENT
  Age: 64 Year
  Sex: Female

DRUGS (2)
  1. DETRUSITOL [Suspect]
     Indication: POLLAKIURIA
     Dosage: UNK
     Dates: start: 20080101, end: 20080101
  2. CRESTOR [Concomitant]
     Dosage: UNK

REACTIONS (2)
  - BLADDER DISCOMFORT [None]
  - CYSTITIS [None]
